FAERS Safety Report 17627849 (Version 1)
Quarter: 2020Q2

REPORT INFORMATION
  Report Type: Spontaneous
  Country: CZ (occurrence: CZ)
  Receive Date: 20200405
  Receipt Date: 20200405
  Transmission Date: 20200713
  Serious: Yes (Other)
  Sender: FDA-Public Use
  Company Number: CZ-TEVA-2020-CZ-1217248

PATIENT
  Age: 60 Year
  Sex: Male

DRUGS (6)
  1. DOXORUBICIN [Suspect]
     Active Substance: DOXORUBICIN
     Indication: DIFFUSE LARGE B-CELL LYMPHOMA
     Dosage: 6 CYCLES OF R-CHOP + 2 CYCLES OF RITUXIMAB
     Dates: start: 2008, end: 2008
  2. VINCRISTINE [Suspect]
     Active Substance: VINCRISTINE
     Indication: DIFFUSE LARGE B-CELL LYMPHOMA
     Dosage: 6 CYCLES OF R-CHOP + 2 CYCLES OF RITUXIMAB
     Dates: start: 2008, end: 2008
  3. PREDNISONE. [Suspect]
     Active Substance: PREDNISONE
     Dosage: 6 CYCLES OF R-CHOP + 2 CYCLES OF RITUXIMAB
     Dates: start: 2008, end: 2008
  4. PERINDOPRIL [Concomitant]
     Active Substance: PERINDOPRIL
     Indication: HYPERTENSION
  5. RITUXIMAB. [Suspect]
     Active Substance: RITUXIMAB
     Dosage: 6 CYCLES OF R-CHOP + 2 CYCLES OF RITUXIMAB
     Dates: start: 2008, end: 2008
  6. CYCLOPHOSPHAMIDE. [Suspect]
     Active Substance: CYCLOPHOSPHAMIDE
     Dosage: 6 CYCLES OF R-CHOP + 2 CYCLES OF RITUXIMAB
     Dates: start: 2008, end: 2008

REACTIONS (2)
  - Neutropenia [Recovered/Resolved]
  - Infection [Recovered/Resolved]

NARRATIVE: CASE EVENT DATE: 2008
